FAERS Safety Report 24092004 (Version 1)
Quarter: 2024Q3

REPORT INFORMATION
  Report Type: Spontaneous
  Country: US (occurrence: US)
  Receive Date: 20240715
  Receipt Date: 20240715
  Transmission Date: 20241017
  Serious: Yes (Other)
  Sender: BAYER
  Company Number: US-BAYER-2024A100738

PATIENT
  Age: 74 Year
  Sex: Female

DRUGS (19)
  1. ASPIRIN [Suspect]
     Active Substance: ASPIRIN
  2. ASPIRIN [Suspect]
     Active Substance: ASPIRIN
  3. MIDOL LONG LASTING RELIEF [Interacting]
     Active Substance: ACETAMINOPHEN
  4. ACETAMINOPHEN [Interacting]
     Active Substance: ACETAMINOPHEN
     Dosage: 15-300 MG AS NEEDED
  5. HEPARIN [Concomitant]
     Active Substance: HEPARIN SODIUM
  6. CARVEDILOL [Concomitant]
     Active Substance: CARVEDILOL
     Dosage: 3.125 MG
  7. OMEPRAZOLE [Concomitant]
     Active Substance: OMEPRAZOLE
  8. POLYETHYLENE GLYCOL [Concomitant]
     Active Substance: POLYETHYLENE GLYCOL
  9. AMLODIPINE [Concomitant]
     Active Substance: AMLODIPINE BESYLATE
  10. GABAPENTIN [Concomitant]
     Active Substance: GABAPENTIN
  11. PROCHLORPERAZINE [Concomitant]
     Active Substance: PROCHLORPERAZINE
     Dosage: AS NEEDED
  12. SEVELAMER [Concomitant]
     Active Substance: SEVELAMER
     Dosage: SEVELAMER 800 MG WITH MEALS
  13. HYDROXYCHLOROQUINE [Concomitant]
     Active Substance: HYDROXYCHLOROQUINE
  14. PANTOPRAZOLE [Concomitant]
     Active Substance: PANTOPRAZOLE
  15. LEVOTHYROXINE [Concomitant]
     Active Substance: LEVOTHYROXINE\LEVOTHYROXINE SODIUM
  16. ATORVASTATIN [Concomitant]
     Active Substance: ATORVASTATIN
  17. POTASSIUM CHLORIDE [Concomitant]
     Active Substance: POTASSIUM CHLORIDE
     Dosage: AS NEEDED
  18. APIXABAN [Concomitant]
     Active Substance: APIXABAN
  19. CODEINE [Concomitant]
     Active Substance: CODEINE

REACTIONS (1)
  - Haematoma [None]
